FAERS Safety Report 6405577 (Version 2)
Quarter: 2014Q1

REPORT INFORMATION
  Report Type: Spontaneous
  Country: FR (occurrence: FR)
  Receive Date: 20070904
  Receipt Date: 20140225
  Transmission Date: 20141002
  Serious: Yes (Hospitalization)
  Sender: FDA-Public Use
  Company Number: FR-ASTRAZENECA-2005CG01264

PATIENT
  Age: 45 Year
  Sex: Female

DRUGS (20)
  1. MOPRAL [Suspect]
     Indication: GASTRODUODENAL ULCER
     Route: 048
     Dates: start: 20050520, end: 20050620
  2. MOPRAL [Suspect]
     Indication: GASTRODUODENAL ULCER
     Route: 048
     Dates: start: 20050621, end: 20051207
  3. BRISTOPEN [Suspect]
     Route: 042
     Dates: start: 20050601, end: 20050620
  4. OFLOCET [Suspect]
     Route: 042
     Dates: start: 20050531, end: 20050620
  5. OFLOCET [Suspect]
     Route: 042
     Dates: start: 20050712, end: 20051001
  6. LOVENOX [Suspect]
     Route: 058
     Dates: start: 20050603, end: 20050620
  7. GENTALLINE [Suspect]
     Route: 042
     Dates: start: 20050601, end: 20050616
  8. RIFADINE [Suspect]
     Route: 048
     Dates: start: 20050712, end: 20050715
  9. PYOSTACINE [Suspect]
     Route: 048
     Dates: start: 20050630, end: 20050712
  10. PYOSTACINE [Suspect]
     Route: 048
     Dates: start: 20050715, end: 20050719
  11. PYOSTACINE [Suspect]
     Route: 048
     Dates: start: 20050729, end: 20051001
  12. AVLOCARDYL [Concomitant]
     Route: 048
     Dates: end: 20051020
  13. ZOMIG [Concomitant]
  14. SKENAN [Concomitant]
  15. FORLAX [Concomitant]
  16. ROCEPHINE [Concomitant]
     Dates: start: 20050620, end: 20050630
  17. VANCOMYCIN [Concomitant]
     Dates: start: 20050620, end: 20050712
  18. STILNOX [Concomitant]
     Dates: end: 20051020
  19. SPECIAFOLDINE [Concomitant]
     Dates: end: 20051020
  20. BURINEX [Concomitant]
     Dates: end: 20051125

REACTIONS (7)
  - Hypotension [Recovered/Resolved]
  - Renal failure acute [Recovered/Resolved]
  - Dermatitis exfoliative [Recovered/Resolved]
  - Agranulocytosis [Not Recovered/Not Resolved]
  - Thrombocytopenia [Not Recovered/Not Resolved]
  - Hepatitis [Recovering/Resolving]
  - Pyrexia [Recovered/Resolved]
